FAERS Safety Report 12558267 (Version 8)
Quarter: 2017Q1

REPORT INFORMATION
  Report Type: Spontaneous
  Country: US (occurrence: US)
  Receive Date: 20160714
  Receipt Date: 20170224
  Transmission Date: 20170428
  Serious: Yes (Death, Life-Threatening, Hospitalization, Other)
  Sender: FDA-Public Use
  Company Number: US-PFIZER INC-US-WYE-H01420507

PATIENT
  Age: 12 Year
  Sex: Male
  Weight: 68 kg

DRUGS (142)
  1. CLINDAMYCIN. [Concomitant]
     Active Substance: CLINDAMYCIN
     Dosage: 500 MG, UNK (1 NOW)
     Route: 042
  2. INSULIN [Concomitant]
     Active Substance: INSULIN NOS
     Dosage: 5 IU, UNK (1 NOW)
     Route: 042
  3. HEPARIN SODIUM. [Concomitant]
     Active Substance: HEPARIN SODIUM
     Dosage: 5000 IU, UNK
     Dates: start: 19970411
  4. VECURONIUM [Concomitant]
     Active Substance: VECURONIUM BROMIDE
     Dosage: 5 UNK, (5 MG/HR)
     Route: 042
     Dates: start: 19970403
  5. SOLU-MEDROL [Suspect]
     Active Substance: METHYLPREDNISOLONE SODIUM SUCCINATE
     Dosage: 60 MG, UNK
  6. MAGNESIUM SULFATE. [Suspect]
     Active Substance: MAGNESIUM SULFATE
     Dosage: 25 MG, UNK, (100 MG/ML, 10ML/HR)
     Route: 041
     Dates: start: 19970403
  7. CEFTAZIDIME. [Suspect]
     Active Substance: CEFTAZIDIME
     Dosage: 1000 MG, UNK
     Route: 042
     Dates: start: 19970411
  8. FENTANYL CITRATE. [Suspect]
     Active Substance: FENTANYL CITRATE
     Dosage: 3000 UG, UNK
     Dates: start: 19970407
  9. ALBUTEROL SULFATE. [Suspect]
     Active Substance: ALBUTEROL SULFATE
     Dosage: 1 DF, AS NEEDED
     Route: 055
  10. LASIX [Suspect]
     Active Substance: FUROSEMIDE
     Dosage: 20 UNK, UNK
     Route: 042
     Dates: start: 19970405
  11. ALBUTEROL. [Suspect]
     Active Substance: ALBUTEROL
     Dosage: UNK, AS NEEDED
     Dates: start: 19970401
  12. DOBUTAMINE [Concomitant]
     Active Substance: DOBUTAMINE\DOBUTAMINE HYDROCHLORIDE
     Dosage: UNK, (2CC 5M/K/MIN)
     Route: 065
     Dates: start: 19970410
  13. DOPAMINE [Concomitant]
     Active Substance: DOPAMINE\DOPAMINE HYDROCHLORIDE
     Dosage: UNK, (20MCG/KG/MIN)
     Route: 065
     Dates: start: 19970409
  14. RANITIDINE. [Concomitant]
     Active Substance: RANITIDINE
     Dosage: 50 MG, UNK, (Q80)
     Route: 042
     Dates: start: 19970409
  15. MIDAZOLAM HYDROCHLORIDE. [Concomitant]
     Active Substance: MIDAZOLAM HYDROCHLORIDE
     Dosage: 125 MG, UNK
     Dates: start: 19970403
  16. VECURONIUM BROMIDE. [Concomitant]
     Active Substance: VECURONIUM BROMIDE
     Dosage: 125 MG, UNK
     Dates: start: 19970403
  17. LACTATED RINGERS [Concomitant]
     Active Substance: CALCIUM CHLORIDE\POTASSIUM CHLORIDE\SODIUM CHLORIDE\SODIUM LACTATE
     Dosage: UNK
  18. DEXTROSE. [Concomitant]
     Active Substance: DEXTROSE
     Dosage: 30 MEQ, UNK
     Dates: start: 19970403
  19. HEPARIN SODIUM. [Concomitant]
     Active Substance: HEPARIN SODIUM
     Dosage: 25000 IU, UNK
     Dates: start: 19970411
  20. LANOLIN. [Concomitant]
     Active Substance: LANOLIN
     Dosage: 3.5 MG, UNK
     Dates: start: 19970407
  21. ALBUMIN [Concomitant]
     Active Substance: ALBUMIN HUMAN
     Dosage: UNK
     Dates: start: 19970410
  22. CEFTAZIDIME. [Suspect]
     Active Substance: CEFTAZIDIME
     Dosage: 1 G, UNK, (Q80)
     Route: 042
     Dates: start: 19970409
  23. CEFUROXIME. [Suspect]
     Active Substance: CEFUROXIME
     Dosage: 1 G, UNK
     Route: 042
     Dates: start: 19970403
  24. FENTANYL CITRATE. [Suspect]
     Active Substance: FENTANYL CITRATE
     Dosage: 300 UG, UNK
     Dates: start: 19970410
  25. PROVENTIL [Suspect]
     Active Substance: ALBUTEROL
     Dosage: UNK
     Route: 048
     Dates: start: 19970407
  26. TERBUTALINE [Suspect]
     Active Substance: TERBUTALINE
     Dosage: 208 ML, UNK
     Route: 042
     Dates: start: 19970403
  27. ALBUTEROL. [Suspect]
     Active Substance: ALBUTEROL
     Dosage: 18 MG, UNK
     Dates: start: 19970403
  28. THEO-DUR [Concomitant]
     Active Substance: THEOPHYLLINE ANHYDROUS
  29. ACETAMINOPHEN. [Concomitant]
     Active Substance: ACETAMINOPHEN
     Dosage: 150 MG, UNK
     Route: 048
     Dates: start: 19970402
  30. TERBUTALINE SULFATE. [Concomitant]
     Active Substance: TERBUTALINE SULFATE
     Dosage: UNK (0.1 MCG/KG/MIN)
     Dates: start: 19970403
  31. FUROSEMIDE. [Concomitant]
     Active Substance: FUROSEMIDE
     Dosage: UNK AS NEEDED, (20MG/2ML; 0.31 MG/KG/DOSE)
     Route: 042
     Dates: start: 19970409
  32. FUROSEMIDE. [Concomitant]
     Active Substance: FUROSEMIDE
     Dosage: 20 MG/ML, AS NEEDED
     Route: 042
     Dates: start: 19970404
  33. PETRO [Concomitant]
     Dosage: UNK
     Route: 047
     Dates: start: 19970407
  34. MILRINONE [Concomitant]
     Active Substance: MILRINONE
     Dosage: UNK, (0.5 MCG/K/MIN)
     Route: 041
     Dates: start: 19970411
  35. DIFLUCAN [Concomitant]
     Active Substance: FLUCONAZOLE
     Dosage: 200 MG, UNK, (Q 24 HR)
     Dates: start: 19970411
  36. SOLU-MEDROL [Suspect]
     Active Substance: METHYLPREDNISOLONE SODIUM SUCCINATE
     Dosage: 125 MG, UNK
  37. SOLU-MEDROL [Suspect]
     Active Substance: METHYLPREDNISOLONE SODIUM SUCCINATE
     Dosage: 50 MG, UNK
  38. IBUPROFEN. [Suspect]
     Active Substance: IBUPROFEN
     Indication: PYREXIA
     Dosage: UNK, AS NEEDED (100 MG/ 5 ML SUSP 120 ML/10 MG/KG/DOSE)
     Dates: start: 19970409
  39. CEFTAZIDIME. [Suspect]
     Active Substance: CEFTAZIDIME
     Dosage: 1 G, UNK, (Q240/Q120)
     Route: 042
     Dates: start: 19970410
  40. DIAMOX SEQUELS [Suspect]
     Active Substance: ACETAZOLAMIDE
     Indication: PYREXIA
     Dosage: 300 MG, UNK
     Dates: start: 19970407
  41. ALBUTEROL SULFATE. [Suspect]
     Active Substance: ALBUTEROL SULFATE
     Indication: ASTHMA
     Dosage: 10 MG, UNK
     Route: 055
     Dates: start: 199609
  42. TERBUTALINE [Suspect]
     Active Substance: TERBUTALINE
     Dosage: UNK, (0.1 MCG/KG/MIN)
     Route: 042
     Dates: start: 19970403
  43. ALBUTEROL. [Suspect]
     Active Substance: ALBUTEROL
     Dosage: 5 MG/ML, AS NEEDED
     Dates: start: 19970406
  44. AZMACORT [Suspect]
     Active Substance: TRIAMCINOLONE ACETONIDE
     Dosage: 250 CC/250 CC REPLACE EVERY 250 CC GASTRIC
     Dates: start: 19970410
  45. OXACILLIN [Concomitant]
     Active Substance: OXACILLIN SODIUM
     Dosage: 1 G, UNK, (Q60)
     Route: 042
     Dates: start: 19970409
  46. RANITIDINE. [Concomitant]
     Active Substance: RANITIDINE
     Dosage: 25 MG, UNK, (2.5 MG/ML 0.34 MG/KG/DOSE)
     Route: 065
     Dates: start: 19970403
  47. IPRATROPIUM BROMIDE. [Concomitant]
     Active Substance: IPRATROPIUM BROMIDE
     Dosage: UNK, (0.5 MG/2.5 ML)
     Dates: start: 19970406
  48. IPRATROPIUM BROMIDE. [Concomitant]
     Active Substance: IPRATROPIUM BROMIDE
     Dosage: 4 UNK, UNK
     Dates: start: 19970409
  49. SODIUM BICARBONATE. [Concomitant]
     Active Substance: SODIUM BICARBONATE
     Dosage: 50 MEQ, UNK
     Dates: start: 19970404
  50. EPINEPHRINE. [Concomitant]
     Active Substance: EPINEPHRINE
     Dosage: 50 ML, AS NEEDED (19.6 MG; 104: 0.05- 0.5 MCG.MG/MIN)
     Route: 042
     Dates: start: 19970410
  51. HEPARIN SOD [Concomitant]
     Dosage: UNK (100MG/10 ML)
     Route: 042
     Dates: start: 19970405
  52. TOBRAMYCIN SULFATE. [Concomitant]
     Active Substance: TOBRAMYCIN SULFATE
     Dosage: 150 MG, UNK
     Dates: start: 19970410
  53. FLAGYL [Concomitant]
     Active Substance: METRONIDAZOLE\METRONIDAZOLE HYDROCHLORIDE
     Dosage: 500 MG, UNK, (Q 8 HR)
     Route: 042
     Dates: start: 19970411
  54. IBUPROFEN. [Suspect]
     Active Substance: IBUPROFEN
     Indication: PYREXIA
     Dosage: 10 MG/KG, UNK
     Dates: start: 19970409
  55. MAGNESIUM SULFATE. [Suspect]
     Active Substance: MAGNESIUM SULFATE
     Dosage: 1 G, UNK
     Route: 041
     Dates: start: 19970403
  56. SUCRALFATE. [Suspect]
     Active Substance: SUCRALFATE
     Dosage: 1 G, UNK (WITH 40)
     Route: 048
     Dates: start: 19970410
  57. SUCRALFATE. [Suspect]
     Active Substance: SUCRALFATE
     Dosage: 1 G, UNK, (04 DEGREE)
     Route: 048
     Dates: start: 19970409
  58. FENTANYL CITRATE. [Suspect]
     Active Substance: FENTANYL CITRATE
     Dosage: 2500 UG, UNK
     Route: 065
     Dates: start: 19970403
  59. PROVENTIL [Suspect]
     Active Substance: ALBUTEROL
     Dosage: UNK
     Route: 048
     Dates: start: 1989
  60. LASIX [Suspect]
     Active Substance: FUROSEMIDE
     Dosage: UNK, (20 MG/HR)
     Route: 042
     Dates: start: 19970407
  61. ATROVENT [Concomitant]
     Active Substance: IPRATROPIUM BROMIDE
     Dosage: UNK
     Route: 065
     Dates: start: 19970401
  62. CEFUROXIME SODIUM. [Concomitant]
     Active Substance: CEFUROXIME SODIUM
     Dosage: UNK (1000 G/ML 46 MG/KG/ DAY)
     Dates: start: 19970403
  63. CEFUROXIME SODIUM. [Concomitant]
     Active Substance: CEFUROXIME SODIUM
     Dosage: UNK
     Dates: start: 19970403
  64. SODIUM BICARBONATE. [Concomitant]
     Active Substance: SODIUM BICARBONATE
     Dosage: 50 MEQ, UNK
     Dates: start: 19970404
  65. ZANTAC [Concomitant]
     Active Substance: RANITIDINE HYDROCHLORIDE
     Dosage: 25 MG, UNK
     Route: 042
     Dates: start: 19970403
  66. OINTMENT [Concomitant]
     Active Substance: UNSPECIFIED INGREDIENT
     Dosage: UNK (1 UNIT DOSE OF 6 DEGREE)
     Dates: start: 19970403
  67. GLYCERIN SUPPOSITORIES [Concomitant]
     Dosage: 1 DF, AS NEEDED
     Dates: start: 19970406
  68. FUROSEMIDE. [Concomitant]
     Active Substance: FUROSEMIDE
     Dosage: UNK, AS NEEDED, (500 MG/50 ML; 100MCG/ML)
     Dates: start: 19970407
  69. DOPAMINE HYDROCHLORIDE. [Concomitant]
     Active Substance: DOPAMINE HYDROCHLORIDE
     Dosage: 975 MG, AS NEEDED, (50 ML NS 19500 MCG/ML)
     Dates: start: 19970409
  70. HEPARIN SOD [Concomitant]
     Dosage: UNK, AS NEEDED, (50 U/CC)
     Dates: start: 19970410
  71. ACETAZOLAMIDE. [Concomitant]
     Active Substance: ACETAZOLAMIDE
     Dosage: 50 MG/ML, UNK
     Dates: start: 19970407
  72. LACTATED RINGERS [Concomitant]
     Active Substance: CALCIUM CHLORIDE\POTASSIUM CHLORIDE\SODIUM CHLORIDE\SODIUM LACTATE
     Dosage: UNK (250 CC/HR (MAINT))
     Route: 042
     Dates: start: 19970411
  73. DEXTROSE. [Concomitant]
     Active Substance: DEXTROSE
     Dosage: 100 ML, UNK
     Dates: start: 19970411
  74. METHYLPREDNISOLONE. [Concomitant]
     Active Substance: METHYLPREDNISOLONE
     Dosage: 125 UNK, UNK
     Route: 042
     Dates: start: 19970402, end: 19970403
  75. DILANTIN [Concomitant]
     Active Substance: PHENYTOIN
     Dosage: UNK
     Dates: start: 19970410
  76. MAGNESIUM SULFATE. [Suspect]
     Active Substance: MAGNESIUM SULFATE
     Dosage: 50 UG, UNK
     Route: 041
  77. SUCRALFATE. [Suspect]
     Active Substance: SUCRALFATE
     Dosage: 100 MG/ML, UNK, (1 GM = 10 ML OF 40)
     Route: 048
     Dates: start: 19970409
  78. FENTANYL CITRATE. [Suspect]
     Active Substance: FENTANYL CITRATE
     Dosage: UNK (100 MCG/HR)
     Route: 042
     Dates: start: 19970403
  79. PROVENTIL [Suspect]
     Active Substance: ALBUTEROL
     Indication: ASTHMA
     Dosage: UNK
     Route: 048
     Dates: start: 19970401
  80. TERBUTALINE [Suspect]
     Active Substance: TERBUTALINE
     Dosage: UNK, (1 MCG/KG/MIN; 0.8 MCG/KG/MIN)
     Route: 042
     Dates: start: 1997
  81. TERBUTALINE [Suspect]
     Active Substance: TERBUTALINE
     Dosage: UNK, (AT 0.8 MCG/KG/MIN)
     Route: 042
     Dates: start: 19970403
  82. LASIX [Suspect]
     Active Substance: FUROSEMIDE
     Dosage: 20 MG, UNK
     Route: 042
     Dates: start: 19970409
  83. ALBUTEROL. [Suspect]
     Active Substance: ALBUTEROL
     Dosage: 10 MG, UNK
     Dates: start: 19970402
  84. OXACILLIN [Concomitant]
     Active Substance: OXACILLIN SODIUM
     Dosage: 1000 MG, UNK
     Dates: start: 19970409
  85. RANITIDINE. [Concomitant]
     Active Substance: RANITIDINE
     Dosage: 25 MG, UNK, (2.5 MG/ML; 0.4 MG/KG/DOSE)
     Dates: start: 19970403
  86. RANITIDINE. [Concomitant]
     Active Substance: RANITIDINE
     Dosage: 25 MG, UNK, (2.5 MG/ML; 0.4 MG/KG/DOSE)
     Dates: start: 19970404
  87. ACETAMINOPHEN. [Concomitant]
     Active Substance: ACETAMINOPHEN
     Dosage: 650 MG, AS NEEDED
     Route: 054
     Dates: start: 19970409
  88. TERBUTALINE SULFATE. [Concomitant]
     Active Substance: TERBUTALINE SULFATE
     Dosage: 59.95 ML, UNK
     Dates: start: 19970403
  89. SODIUM BICARBONATE. [Concomitant]
     Active Substance: SODIUM BICARBONATE
     Dosage: 25 MEQ, UNK
     Dates: start: 19970411
  90. VECURONIUM BROMIDE. [Concomitant]
     Active Substance: VECURONIUM BROMIDE
     Dosage: 100 MG, AS NEEDED
     Dates: start: 19970407
  91. GABAPENTIN. [Concomitant]
     Active Substance: GABAPENTIN
     Dosage: UNK (1 NOW)
     Route: 042
  92. DOBUTAMINE HCL [Concomitant]
     Active Substance: DOBUTAMINE HYDROCHLORIDE
     Dosage: 1000 MG, UNK
     Dates: start: 19970410
  93. DEXTROSE. [Concomitant]
     Active Substance: DEXTROSE
     Dosage: 250 ML, AS NEEDED
     Dates: start: 19970405
  94. HEPARIN SODIUM. [Concomitant]
     Active Substance: HEPARIN SODIUM
     Dosage: 5000 IU, UNK
     Dates: start: 19970410
  95. KCL [Concomitant]
     Active Substance: POTASSIUM CHLORIDE
     Dosage: 1000 IU, UNK
     Dates: start: 19970410
  96. BECLOMETHASONE [Concomitant]
     Active Substance: BECLOMETHASONE
     Dosage: UNK
     Dates: start: 19970411
  97. MAGNESIUM SULFATE. [Suspect]
     Active Substance: MAGNESIUM SULFATE
     Dosage: 2 G, UNK
     Route: 041
  98. CEFTAZIDIME. [Suspect]
     Active Substance: CEFTAZIDIME
     Dosage: 1000 MG, UNK
     Route: 042
     Dates: start: 19970409
  99. LASIX [Suspect]
     Active Substance: FUROSEMIDE
     Dosage: 20 MG, UNK, (Q6)
     Route: 042
     Dates: start: 19970406
  100. LASIX [Suspect]
     Active Substance: FUROSEMIDE
     Dosage: 20 MG, AS NEEDED
  101. ALBUTEROL. [Suspect]
     Active Substance: ALBUTEROL
     Indication: ASTHMA
     Dosage: UNK
     Dates: start: 199609
  102. ALBUTEROL. [Suspect]
     Active Substance: ALBUTEROL
     Dosage: 5 MG/ML, AS NEEDED (SOLN 20 ML INHALATION)
     Dates: start: 19970402
  103. ALBUTEROL. [Suspect]
     Active Substance: ALBUTEROL
     Dosage: 20 ML, UNK
     Dates: start: 19970406
  104. NASACORT [Suspect]
     Active Substance: TRIAMCINOLONE ACETONIDE
     Dosage: UNK
  105. ATROVENT [Concomitant]
     Active Substance: IPRATROPIUM BROMIDE
     Dosage: UNK (0.5 MG 04)
     Dates: start: 19970402
  106. IPRATROPIUM BROMIDE. [Concomitant]
     Active Substance: IPRATROPIUM BROMIDE
     Dosage: 14 G, UNK (DOSE 4 PUFFS 24HR)
     Dates: start: 19970403
  107. VECURONIUM BROMIDE. [Concomitant]
     Active Substance: VECURONIUM BROMIDE
     Dosage: 0.5 MG/ML, UNK
     Dates: start: 19970403
  108. GLYCERIN SUPPOSITORIES [Concomitant]
     Dosage: 1 DF, AS NEEDED
     Route: 054
     Dates: start: 19970409
  109. FUROSEMIDE. [Concomitant]
     Active Substance: FUROSEMIDE
     Dosage: 2 ML, UNK
     Route: 042
     Dates: start: 19970406
  110. HEPARIN SOD [Concomitant]
     Dosage: UNK (10 U/ML, 10 ML)
     Route: 042
     Dates: start: 19970405
  111. HEPARIN SOD [Concomitant]
     Dosage: 150 IU, UNK
     Dates: start: 19970405
  112. DEXTROSE. [Concomitant]
     Active Substance: DEXTROSE
     Dosage: UNK (0.452 MCL 1000 ML)
     Dates: start: 19970410
  113. DEXTROSE. [Concomitant]
     Active Substance: DEXTROSE
     Dosage: 250 ML, UNK
     Dates: start: 19970403
  114. THAM [Concomitant]
     Active Substance: TROMETHAMINE
     Dosage: 500 ML, UNK
     Dates: start: 19970410
  115. SOLU-MEDROL [Suspect]
     Active Substance: METHYLPREDNISOLONE SODIUM SUCCINATE
     Indication: ASTHMA
     Dosage: 240 MG, DAILY
     Route: 042
     Dates: start: 19970402
  116. CEFTAZIDIME. [Suspect]
     Active Substance: CEFTAZIDIME
     Dosage: 10 ML, AS NEEDED (1000 MG)
     Route: 042
     Dates: start: 19970410
  117. ALBUTEROL. [Suspect]
     Active Substance: ALBUTEROL
     Dosage: 17 G, AS NEEDED 17 G, (8-10 PUFFS; 6-10 PUFFS/10 MG/HR
     Dates: start: 19970403
  118. PREDNISONE. [Suspect]
     Active Substance: PREDNISONE
     Dosage: UNK
  119. RANITIDINE. [Concomitant]
     Active Substance: RANITIDINE
     Dosage: UNK, (400 MG/24H 7)
     Dates: start: 19970410
  120. ACETAMINOPHEN. [Concomitant]
     Active Substance: ACETAMINOPHEN
     Dosage: UNK (650 MG/20ML)
     Route: 048
     Dates: start: 19970402
  121. ACETAMINOPHEN. [Concomitant]
     Active Substance: ACETAMINOPHEN
     Dosage: UNK, AS NEEDED (650 MG/20 ML/10 MG/KG/DOSE)
     Route: 048
     Dates: start: 19970409
  122. ACETAMINOPHEN. [Concomitant]
     Active Substance: ACETAMINOPHEN
     Dosage: UNK, (325MG/10ML)
     Route: 048
     Dates: start: 19970402
  123. TERBUTALINE SULFATE. [Concomitant]
     Active Substance: TERBUTALINE SULFATE
     Dosage: 58.95 MG, UNK
     Route: 042
     Dates: start: 19970405
  124. VECURONIUM BROMIDE. [Concomitant]
     Active Substance: VECURONIUM BROMIDE
     Dosage: UNK, (5 MG/HR)
     Route: 041
     Dates: start: 19970403
  125. VECURONIUM BROMIDE. [Concomitant]
     Active Substance: VECURONIUM BROMIDE
     Dosage: 6 UNK, UNK
  126. CALCIUM CHLORIDE. [Concomitant]
     Active Substance: CALCIUM CHLORIDE
     Dosage: 500 MG, UNK
  127. LIPITOR [Concomitant]
     Active Substance: ATORVASTATIN CALCIUM
     Dosage: UNK
  128. INSULIN [Concomitant]
     Active Substance: INSULIN NOS
     Dosage: 250 IU, UNK
     Dates: start: 19970410
  129. VENTOLIN [Concomitant]
     Active Substance: ALBUTEROL SULFATE
     Dosage: 17 G, AS NEEDED (6-10 PUF)
     Dates: start: 19970403
  130. PIPERACILLIN [Concomitant]
     Active Substance: PIPERACILLIN
     Dosage: 4 MG, UNK, (Q 8 HR)
     Route: 042
     Dates: start: 19970411
  131. ALBUMIN [Concomitant]
     Active Substance: ALBUMIN HUMAN
     Dosage: 150 ML, UNK
     Dates: start: 19970410
  132. SOLU-MEDROL [Suspect]
     Active Substance: METHYLPREDNISOLONE SODIUM SUCCINATE
     Dosage: 750 MG, DAILY
     Route: 042
  133. MAGNESIUM SULFATE. [Suspect]
     Active Substance: MAGNESIUM SULFATE
     Dosage: UNK, (50364 .06 MEQ/ML: 25 GM)
     Route: 041
     Dates: start: 19970405
  134. TYLENOL [Suspect]
     Active Substance: ACETAMINOPHEN
     Dosage: 325 MG, AS NEEDED
     Route: 048
     Dates: start: 19970401
  135. ALBUTEROL. [Suspect]
     Active Substance: ALBUTEROL
     Dosage: 5 MG, UNK
     Dates: start: 19970402
  136. ALBUTEROL. [Suspect]
     Active Substance: ALBUTEROL
     Dosage: 5 MG/ML, UNK, (SOLN 20 ML INHALATION)
     Dates: start: 19970406
  137. ALBUTEROL. [Suspect]
     Active Substance: ALBUTEROL
     Dosage: UNK, (10 MG/HR)
     Dates: start: 19970403
  138. DOPAMINE [Concomitant]
     Active Substance: DOPAMINE\DOPAMINE HYDROCHLORIDE
     Dosage: UNK, (8 M/K/MIN)
     Dates: start: 19970408
  139. ATROVENT [Concomitant]
     Active Substance: IPRATROPIUM BROMIDE
     Dosage: 4 DF, UNK
     Dates: start: 19970403
  140. RANITIDINE. [Concomitant]
     Active Substance: RANITIDINE
     Dosage: 25 MG, UNK (2.5 MG/ML 11.4 MG/KG/DOSE)
     Route: 065
     Dates: start: 19970403
  141. MIDAZOLAM HYDROCHLORIDE. [Concomitant]
     Active Substance: MIDAZOLAM HYDROCHLORIDE
     Dosage: 150 UNK, UNK
     Dates: start: 19970410
  142. MIDAZOLAM HYDROCHLORIDE. [Concomitant]
     Active Substance: MIDAZOLAM HYDROCHLORIDE
     Dosage: 150 MG, UNK,
     Dates: start: 19970407

REACTIONS (28)
  - Hypotension [Fatal]
  - Disorder of sex development [Unknown]
  - Drug prescribing error [Fatal]
  - Cardiogenic shock [Fatal]
  - Drug ineffective [Fatal]
  - Accidental exposure to product [Unknown]
  - Nausea [Unknown]
  - Gastrointestinal necrosis [Fatal]
  - Renal tubular necrosis [Fatal]
  - Lactic acidosis [Fatal]
  - Status asthmaticus [Fatal]
  - Respiratory failure [Fatal]
  - Hepatic necrosis [Fatal]
  - Ileus paralytic [Fatal]
  - Intentional product misuse [Unknown]
  - Genital pain [Unknown]
  - Drug intolerance [Unknown]
  - Dizziness [Unknown]
  - Multiple organ dysfunction syndrome [Fatal]
  - Thrombosis [Fatal]
  - Peritoneal haemorrhage [Fatal]
  - Retroperitoneal haemorrhage [Fatal]
  - Pulmonary haemorrhage [Fatal]
  - Renal failure [Fatal]
  - Hepatic failure [Fatal]
  - Septic shock [Fatal]
  - Duodenal ulcer haemorrhage [Fatal]
  - Disseminated intravascular coagulation [Fatal]

NARRATIVE: CASE EVENT DATE: 19970401
